FAERS Safety Report 14560797 (Version 2)
Quarter: 2018Q1

REPORT INFORMATION
  Report Type: Spontaneous
  Country: BE (occurrence: BE)
  Receive Date: 20180222
  Receipt Date: 20180329
  Transmission Date: 20180509
  Serious: Yes (Other)
  Sender: FDA-Public Use
  Company Number: BE-CIPLA LTD.-2018BE06078

PATIENT

DRUGS (1)
  1. CETIRIZINE [Suspect]
     Active Substance: CETIRIZINE HYDROCHLORIDE
     Indication: PRODUCT USED FOR UNKNOWN INDICATION
     Dosage: 20 GTT, DOSE INCREASED FROM 5 DROPS TO 20 DROPS
     Route: 065
     Dates: start: 20140101, end: 20170901

REACTIONS (1)
  - Hepatitis fulminant [Recovering/Resolving]
